FAERS Safety Report 12059142 (Version 1)
Quarter: 2016Q1

REPORT INFORMATION
  Report Type: Spontaneous
  Country: US (occurrence: None)
  Receive Date: 20160208
  Receipt Date: 20160208
  Transmission Date: 20160526
  Serious: No
  Sender: FDA-Public Use
  Company Number: None

PATIENT
  Age: 71 Year
  Sex: Male

DRUGS (10)
  1. CYCLOSPORINE. [Suspect]
     Active Substance: CYCLOSPORINE
     Indication: TRANSPLANT
     Route: 048
     Dates: start: 20140417
  2. COLCHICINE. [Concomitant]
     Active Substance: COLCHICINE
  3. NIFADIPINE [Concomitant]
  4. VICODIN [Concomitant]
     Active Substance: ACETAMINOPHEN\HYDROCODONE BITARTRATE
  5. ONDANSETRON [Concomitant]
     Active Substance: ONDANSETRON
  6. TRAVASTON [Concomitant]
  7. RANITIDINE [Concomitant]
     Active Substance: RANITIDINE\RANITIDINE HYDROCHLORIDE
  8. OMEPRAZOLE. [Concomitant]
     Active Substance: OMEPRAZOLE
  9. CLINDAMYCIN [Concomitant]
     Active Substance: CLINDAMYCIN\CLINDAMYCIN PHOSPHATE
  10. LAVAXONE [Concomitant]

REACTIONS (3)
  - Skin disorder [None]
  - Tongue neoplasm [None]
  - Neoplasm skin [None]

NARRATIVE: CASE EVENT DATE: 20151120
